FAERS Safety Report 7081970 (Version 4)
Quarter: 2013Q1

REPORT INFORMATION
  Report Type: Report from Study
  Country: JP (occurrence: JP)
  Receive Date: 20090814
  Receipt Date: 20130109
  Transmission Date: 20140127
  Serious: Yes (Other)
  Sender: FDA-Public Use
  Company Number: PHHY2009JP16494

PATIENT
  Age: 81 Year
  Sex: Male

DRUGS (11)
  1. AMN107 [Suspect]
     Indication: CHRONIC MYELOID LEUKAEMIA
     Dosage: 800 MG, QD
     Route: 048
     Dates: start: 20090415, end: 20110426
  2. AMN107 [Suspect]
     Dosage: 400 MG, QD
     Route: 048
     Dates: start: 20110427
  3. GASTER [Concomitant]
     Route: 048
     Dates: start: 20090410
  4. DEPAS [Concomitant]
     Route: 048
     Dates: start: 20090410
  5. SENNOSIDE [Concomitant]
     Route: 048
     Dates: start: 20090403
  6. ALLELOCK [Concomitant]
     Indication: CHRONIC MYELOID LEUKAEMIA
     Route: 048
     Dates: start: 20090423
  7. MAGMITT KENEI [Concomitant]
     Route: 048
     Dates: start: 20090421
  8. URSO [Concomitant]
     Indication: CHRONIC MYELOID LEUKAEMIA
     Route: 048
     Dates: start: 20090420, end: 20090601
  9. MUCOSOLVAN [Concomitant]
     Indication: BRONCHITIS CHRONIC
  10. KAMISHOYOSAN [Concomitant]
     Dates: start: 20100203
  11. MUCODYNE [Concomitant]

REACTIONS (7)
  - Blood potassium decreased [Recovered/Resolved]
  - Pyrexia [Recovering/Resolving]
  - Malaise [Not Recovered/Not Resolved]
  - Rash generalised [Recovered/Resolved]
  - Electrocardiogram QT prolonged [Recovered/Resolved]
  - Hyperbilirubinaemia [Recovered/Resolved]
  - Anaemia [Recovered/Resolved]
